FAERS Safety Report 8093754-7 (Version None)
Quarter: 2012Q1

REPORT INFORMATION
  Report Type: 
  Country: None (occurrence: None)
  Receive Date: 20120129
  Receipt Date: 20110929
  Transmission Date: 20120608
  Serious: No
  Sender: FDA-Public Use
  Company Number: US-ABBOTT-11P-163-0859975-00

PATIENT
  Sex: Male

DRUGS (2)
  1. HEPATITIS A/B VACCINATION [Concomitant]
     Indication: PRODUCT USED FOR UNKNOWN INDICATION
  2. HUMIRA [Suspect]
     Indication: CROHN'S DISEASE
     Route: 058
     Dates: start: 20110802

REACTIONS (3)
  - RASH [None]
  - BLISTER [None]
  - SKIN EXFOLIATION [None]
